FAERS Safety Report 5441601-1 (Version None)
Quarter: 2007Q3

REPORT INFORMATION
  Report Type: 
  Country: None (occurrence: None)
  Receive Date: 20070829
  Receipt Date: 20070823
  Transmission Date: 20080115
  Serious: Yes (Life-Threatening, Hospitalization)
  Sender: FDA-Public Use
  Company Number: 2007-02858

PATIENT
  Age: 70 Year
  Sex: Female
  Weight: 70 kg

DRUGS (3)
  1. VELCADE [Suspect]
     Indication: MULTIPLE MYELOMA
     Dosage: 1.70 MG, INTRAVENOUS
     Route: 042
     Dates: start: 20070117, end: 20070802
  2. ETAMSILATE (ETAMSILATE) [Concomitant]
  3. RECORMON (ERYTHROPOIETIN HUMAN) [Concomitant]

REACTIONS (2)
  - BONE MARROW FAILURE [None]
  - BONE MARROW TOXICITY [None]
